FAERS Safety Report 8915291 (Version 1)
Quarter: 2012Q4

REPORT INFORMATION
  Report Type: 
  Country: US (occurrence: US)
  Receive Date: 20121119
  Receipt Date: 20121119
  Transmission Date: 20130627
  Serious: No
  Sender: FDA-Public Use
  Company Number: US-ASTRAZENECA-2012SE84392

PATIENT
  Age: 90 Year
  Sex: Female
  Weight: 65.8 kg

DRUGS (3)
  1. NEXIUM [Suspect]
     Indication: GASTROOESOPHAGEAL REFLUX DISEASE
     Route: 048
     Dates: start: 20121102
  2. ATENOLOL [Concomitant]
  3. DIURETIC [Concomitant]

REACTIONS (1)
  - Drug ineffective [Not Recovered/Not Resolved]
